FAERS Safety Report 6166902-3 (Version None)
Quarter: 2009Q2

REPORT INFORMATION
  Report Type: 
  Country: None (occurrence: None)
  Receive Date: 20090424
  Receipt Date: 20090417
  Transmission Date: 20091009
  Serious: Yes (Other)
  Sender: FDA-Public Use
  Company Number: B0571372A

PATIENT
  Sex: Male

DRUGS (4)
  1. SERETIDE [Suspect]
     Indication: ASTHMA
     Route: 055
     Dates: start: 20090101, end: 20090301
  2. LANSOPRAZOLE [Concomitant]
  3. PANTOPRAZOLE SODIUM [Concomitant]
  4. FLUTICASONE PROPIONATE [Concomitant]
     Indication: ASTHMA
     Dosage: 250MCG TWICE PER DAY
     Dates: start: 20080201, end: 20090101

REACTIONS (4)
  - ANAL CANDIDIASIS [None]
  - ENTEROCOLITIS HAEMORRHAGIC [None]
  - GASTROINTESTINAL CANDIDIASIS [None]
  - OESOPHAGITIS [None]
